FAERS Safety Report 8150256-7 (Version None)
Quarter: 2012Q1

REPORT INFORMATION
  Report Type: 
  Country: None (occurrence: None)
  Receive Date: 20120220
  Receipt Date: 20120215
  Transmission Date: 20120608
  Serious: Yes (Other)
  Sender: FDA-Public Use
  Company Number: US-PFIZER INC-2012041403

PATIENT
  Sex: Female
  Weight: 73.923 kg

DRUGS (2)
  1. GEODON [Suspect]
     Dosage: 240 MG, 1X/DAY
     Route: 048
     Dates: start: 20100101, end: 20110101
  2. GEODON [Suspect]
     Indication: BIPOLAR DISORDER
     Dosage: 80 MG, 1X/DAY
     Route: 048
     Dates: start: 20080101, end: 20100101

REACTIONS (3)
  - MUSCLE TWITCHING [None]
  - MASTICATION DISORDER [None]
  - DYSKINESIA [None]
